FAERS Safety Report 9115326 (Version 1)
Quarter: 2013Q1

REPORT INFORMATION
  Report Type: Spontaneous
  Country: US (occurrence: None)
  Receive Date: 20130221
  Receipt Date: 20130221
  Transmission Date: 20140127
  Serious: No
  Sender: FDA-Public Use
  Company Number: None

PATIENT
  Age: 62 Year
  Sex: Female
  Weight: 73.94 kg

DRUGS (1)
  1. TIZANDINE (TIZANDINE HYDROCHLORIDE) [Suspect]
     Indication: MUSCLE SPASMS
     Route: 048
     Dates: start: 20130129, end: 20130130

REACTIONS (8)
  - Dry mouth [None]
  - Dizziness [None]
  - Dizziness [None]
  - Asthenia [None]
  - Fatigue [None]
  - Nasal dryness [None]
  - Sinusitis [None]
  - Nasopharyngitis [None]
